FAERS Safety Report 18737303 (Version 7)
Quarter: 2021Q3

REPORT INFORMATION
  Report Type: Spontaneous
  Country: CA (occurrence: CA)
  Receive Date: 20210113
  Receipt Date: 20210825
  Transmission Date: 20211014
  Serious: Yes (Hospitalization, Disabling, Other)
  Sender: FDA-Public Use
  Company Number: CA-JNJFOC-20210107033

PATIENT
  Age: 41 Year
  Sex: Female
  Weight: 90 kg

DRUGS (235)
  1. MOTRIN [Suspect]
     Active Substance: IBUPROFEN
     Route: 048
  2. APREMILAST [Suspect]
     Active Substance: APREMILAST
     Route: 065
  3. CYCLOSPORINE. [Suspect]
     Active Substance: CYCLOSPORINE
     Indication: RHEUMATOID ARTHRITIS
     Route: 065
  4. CYCLOSPORINE. [Suspect]
     Active Substance: CYCLOSPORINE
     Route: 065
  5. TOCILIZUMAB. [Suspect]
     Active Substance: TOCILIZUMAB
     Route: 065
  6. TOCILIZUMAB. [Suspect]
     Active Substance: TOCILIZUMAB
     Route: 065
  7. HUMIRA [Suspect]
     Active Substance: ADALIMUMAB
     Indication: PSORIATIC ARTHROPATHY
     Route: 058
  8. HUMIRA [Suspect]
     Active Substance: ADALIMUMAB
     Indication: RHEUMATOID ARTHRITIS
     Route: 058
  9. HUMIRA [Suspect]
     Active Substance: ADALIMUMAB
     Route: 058
  10. HUMIRA [Suspect]
     Active Substance: ADALIMUMAB
     Route: 058
  11. HUMIRA [Suspect]
     Active Substance: ADALIMUMAB
     Route: 058
  12. HUMIRA [Suspect]
     Active Substance: ADALIMUMAB
     Route: 058
  13. ARAVA [Suspect]
     Active Substance: LEFLUNOMIDE
     Route: 065
  14. RITUXIMAB. [Suspect]
     Active Substance: RITUXIMAB
     Route: 042
  15. ENBREL [Suspect]
     Active Substance: ETANERCEPT
     Route: 065
  16. ENBREL [Suspect]
     Active Substance: ETANERCEPT
     Route: 065
  17. LEFLUNOMIDE. [Suspect]
     Active Substance: LEFLUNOMIDE
     Indication: PSORIATIC ARTHROPATHY
     Route: 048
  18. LEFLUNOMIDE. [Suspect]
     Active Substance: LEFLUNOMIDE
     Route: 065
  19. METHOTREXATE. [Suspect]
     Active Substance: METHOTREXATE
     Indication: RHEUMATOID ARTHRITIS
     Route: 058
  20. METHOTREXATE. [Suspect]
     Active Substance: METHOTREXATE
  21. METHOTREXATE. [Suspect]
     Active Substance: METHOTREXATE
     Route: 058
  22. METHOTREXATE. [Suspect]
     Active Substance: METHOTREXATE
     Route: 065
  23. METHOTREXATE. [Suspect]
     Active Substance: METHOTREXATE
     Route: 065
  24. METHOTREXATE. [Suspect]
     Active Substance: METHOTREXATE
     Route: 048
  25. CIMZIA [Suspect]
     Active Substance: CERTOLIZUMAB PEGOL
     Route: 058
  26. CODEINE [Suspect]
     Active Substance: CODEINE
     Indication: PRODUCT USED FOR UNKNOWN INDICATION
     Route: 065
  27. HYDROXYCHLOROQUINE SULFATE. [Suspect]
     Active Substance: HYDROXYCHLOROQUINE SULFATE
     Indication: RHEUMATOID ARTHRITIS
     Route: 065
  28. HYDROXYCHLOROQUINE [Suspect]
     Active Substance: HYDROXYCHLOROQUINE
     Route: 048
  29. ALENDRONIC ACID [Suspect]
     Active Substance: ALENDRONIC ACID
     Route: 065
  30. ALENDRONIC ACID [Suspect]
     Active Substance: ALENDRONIC ACID
     Route: 058
  31. FOLIC ACID. [Concomitant]
     Active Substance: FOLIC ACID
  32. CHOLECALCIFEROL [Concomitant]
     Active Substance: CHOLECALCIFEROL
  33. DEXILANT [Concomitant]
     Active Substance: DEXLANSOPRAZOLE
  34. REMICADE [Suspect]
     Active Substance: INFLIXIMAB
     Indication: PSORIATIC ARTHROPATHY
     Route: 058
  35. REMICADE [Suspect]
     Active Substance: INFLIXIMAB
     Route: 042
  36. MOTRIN [Suspect]
     Active Substance: IBUPROFEN
     Route: 048
  37. FOSAMAX [Suspect]
     Active Substance: ALENDRONATE SODIUM
     Route: 065
  38. APREMILAST [Suspect]
     Active Substance: APREMILAST
     Route: 065
  39. CYCLOSPORINE. [Suspect]
     Active Substance: CYCLOSPORINE
     Indication: PSORIATIC ARTHROPATHY
     Route: 048
  40. CYCLOSPORINE. [Suspect]
     Active Substance: CYCLOSPORINE
     Route: 065
  41. CERTOLIZUMAB PEGOL [Suspect]
     Active Substance: CERTOLIZUMAB PEGOL
     Indication: PSORIATIC ARTHROPATHY
     Route: 058
  42. TOCILIZUMAB. [Suspect]
     Active Substance: TOCILIZUMAB
     Indication: RHEUMATOID ARTHRITIS
     Route: 065
  43. TOCILIZUMAB. [Suspect]
     Active Substance: TOCILIZUMAB
     Route: 065
  44. TOCILIZUMAB. [Suspect]
     Active Substance: TOCILIZUMAB
     Route: 065
  45. HUMIRA [Suspect]
     Active Substance: ADALIMUMAB
     Route: 058
  46. HUMIRA [Suspect]
     Active Substance: ADALIMUMAB
     Route: 065
  47. HUMIRA [Suspect]
     Active Substance: ADALIMUMAB
     Route: 058
  48. HUMIRA [Suspect]
     Active Substance: ADALIMUMAB
     Route: 058
  49. HUMIRA [Suspect]
     Active Substance: ADALIMUMAB
     Route: 058
  50. HUMIRA [Suspect]
     Active Substance: ADALIMUMAB
     Route: 058
  51. ARAVA [Suspect]
     Active Substance: LEFLUNOMIDE
     Indication: RHEUMATOID ARTHRITIS
     Route: 048
  52. ARAVA [Suspect]
     Active Substance: LEFLUNOMIDE
     Route: 048
  53. ARAVA [Suspect]
     Active Substance: LEFLUNOMIDE
     Route: 048
  54. RITUXIMAB. [Suspect]
     Active Substance: RITUXIMAB
     Route: 065
  55. ENBREL [Suspect]
     Active Substance: ETANERCEPT
     Route: 065
  56. ENBREL [Suspect]
     Active Substance: ETANERCEPT
     Route: 065
  57. LEFLUNOMIDE. [Suspect]
     Active Substance: LEFLUNOMIDE
     Indication: RHEUMATOID ARTHRITIS
     Route: 065
  58. LEFLUNOMIDE. [Suspect]
     Active Substance: LEFLUNOMIDE
     Route: 048
  59. METHOTREXATE. [Suspect]
     Active Substance: METHOTREXATE
     Route: 065
  60. METHOTREXATE. [Suspect]
     Active Substance: METHOTREXATE
     Route: 048
  61. LEFLUNOMIDE. [Suspect]
     Active Substance: LEFLUNOMIDE
     Indication: PSORIATIC ARTHROPATHY
     Route: 048
  62. ETANERCEPT [Suspect]
     Active Substance: ETANERCEPT
     Indication: PSORIATIC ARTHROPATHY
     Route: 065
  63. ETANERCEPT [Suspect]
     Active Substance: ETANERCEPT
     Route: 065
  64. ETANERCEPT [Suspect]
     Active Substance: ETANERCEPT
     Route: 065
  65. ETANERCEPT [Suspect]
     Active Substance: ETANERCEPT
     Route: 065
  66. ETANERCEPT [Suspect]
     Active Substance: ETANERCEPT
     Route: 065
  67. HYDROXYCHLOROQUINE [Suspect]
     Active Substance: HYDROXYCHLOROQUINE
     Route: 065
  68. HYDROXYCHLOROQUINE [Suspect]
     Active Substance: HYDROXYCHLOROQUINE
     Route: 048
  69. GOLD SODIUM THIOMALATE [Suspect]
     Active Substance: GOLD SODIUM THIOMALATE
     Route: 030
  70. APO?LEFLUNOMIDE [Suspect]
     Active Substance: LEFLUNOMIDE
     Route: 048
  71. APO?HYDROXYQUINE [Suspect]
     Active Substance: HYDROXYCHLOROQUINE SULFATE
     Route: 065
  72. BENADRYL [Suspect]
     Active Substance: DIPHENHYDRAMINE HYDROCHLORIDE
     Indication: PRODUCT USED FOR UNKNOWN INDICATION
  73. GRAVOL [Concomitant]
     Active Substance: DIMENHYDRINATE
  74. CANNABIS SATIVA [Concomitant]
     Active Substance: CANNABIS SATIVA FLOWERING TOP
  75. STELARA [Suspect]
     Active Substance: USTEKINUMAB
     Route: 048
  76. REMICADE [Suspect]
     Active Substance: INFLIXIMAB
     Route: 048
  77. MOTRIN [Suspect]
     Active Substance: IBUPROFEN
     Route: 048
  78. APREMILAST [Suspect]
     Active Substance: APREMILAST
     Indication: PSORIASIS
     Route: 065
  79. APREMILAST [Suspect]
     Active Substance: APREMILAST
     Indication: RHEUMATOID ARTHRITIS
     Route: 048
  80. SULFAMETHOXAZOLE [Suspect]
     Active Substance: SULFAMETHOXAZOLE
     Indication: PRODUCT USED FOR UNKNOWN INDICATION
     Route: 048
  81. APO IBUPROFEN [Suspect]
     Active Substance: IBUPROFEN
     Indication: PRODUCT USED FOR UNKNOWN INDICATION
     Route: 048
  82. TOCILIZUMAB. [Suspect]
     Active Substance: TOCILIZUMAB
     Route: 065
  83. TOCILIZUMAB. [Suspect]
     Active Substance: TOCILIZUMAB
     Route: 065
  84. HUMIRA [Suspect]
     Active Substance: ADALIMUMAB
     Route: 058
  85. ORENCIA [Suspect]
     Active Substance: ABATACEPT
     Indication: RHEUMATOID ARTHRITIS
  86. ARAVA [Suspect]
     Active Substance: LEFLUNOMIDE
     Route: 065
  87. RITUXIMAB. [Suspect]
     Active Substance: RITUXIMAB
     Route: 042
  88. ENBREL [Suspect]
     Active Substance: ETANERCEPT
     Route: 058
  89. METHOTREXATE. [Suspect]
     Active Substance: METHOTREXATE
     Route: 065
  90. METHOTREXATE. [Suspect]
     Active Substance: METHOTREXATE
     Route: 058
  91. METHOTREXATE. [Suspect]
     Active Substance: METHOTREXATE
     Route: 058
  92. ABATACEPT [Suspect]
     Active Substance: ABATACEPT
     Indication: PSORIATIC ARTHROPATHY
     Route: 065
  93. ETANERCEPT [Suspect]
     Active Substance: ETANERCEPT
     Route: 065
  94. CIMZIA [Suspect]
     Active Substance: CERTOLIZUMAB PEGOL
     Indication: PSORIATIC ARTHROPATHY
     Route: 058
  95. HYDROXYCHLOROQUINE [Suspect]
     Active Substance: HYDROXYCHLOROQUINE
     Route: 065
  96. AZATHIOPRINE. [Suspect]
     Active Substance: AZATHIOPRINE
     Indication: PRODUCT USED FOR UNKNOWN INDICATION
     Route: 065
  97. APO?LEFLUNOMIDE [Suspect]
     Active Substance: LEFLUNOMIDE
     Route: 065
  98. APO?LEFLUNOMIDE [Suspect]
     Active Substance: LEFLUNOMIDE
     Route: 048
  99. OXYCODONE [Concomitant]
     Active Substance: OXYCODONE
  100. RISEDRONATE SODIUM. [Concomitant]
     Active Substance: RISEDRONATE SODIUM
     Route: 048
  101. FEBUXOSTAT. [Concomitant]
     Active Substance: FEBUXOSTAT
  102. FEBUXOSTAT. [Concomitant]
     Active Substance: FEBUXOSTAT
  103. SIMPONI [Suspect]
     Active Substance: GOLIMUMAB
     Indication: PSORIATIC ARTHROPATHY
     Route: 058
  104. REMICADE [Suspect]
     Active Substance: INFLIXIMAB
     Indication: RHEUMATOID ARTHRITIS
     Route: 042
  105. REMICADE [Suspect]
     Active Substance: INFLIXIMAB
     Route: 048
  106. MOTRIN [Suspect]
     Active Substance: IBUPROFEN
     Route: 048
  107. MOTRIN [Suspect]
     Active Substance: IBUPROFEN
     Route: 048
  108. FOSAMAX [Suspect]
     Active Substance: ALENDRONATE SODIUM
     Indication: PRODUCT USED FOR UNKNOWN INDICATION
     Route: 065
  109. FOSAMAX [Suspect]
     Active Substance: ALENDRONATE SODIUM
     Route: 065
  110. APREMILAST [Suspect]
     Active Substance: APREMILAST
     Indication: PSORIATIC ARTHROPATHY
     Route: 065
  111. CELEBREX [Suspect]
     Active Substance: CELECOXIB
     Indication: ADENOMATOUS POLYPOSIS COLI
     Route: 048
  112. CELEBREX [Suspect]
     Active Substance: CELECOXIB
     Route: 065
  113. COSENTYX [Suspect]
     Active Substance: SECUKINUMAB
     Route: 065
  114. HUMIRA [Suspect]
     Active Substance: ADALIMUMAB
     Route: 058
  115. HUMIRA [Suspect]
     Active Substance: ADALIMUMAB
     Route: 058
  116. HUMIRA [Suspect]
     Active Substance: ADALIMUMAB
     Route: 058
  117. HUMIRA [Suspect]
     Active Substance: ADALIMUMAB
     Route: 058
  118. ENBREL [Suspect]
     Active Substance: ETANERCEPT
     Indication: RHEUMATOID ARTHRITIS
     Route: 058
  119. ENBREL [Suspect]
     Active Substance: ETANERCEPT
     Route: 058
  120. ENBREL [Suspect]
     Active Substance: ETANERCEPT
     Route: 065
  121. ENBREL [Suspect]
     Active Substance: ETANERCEPT
     Route: 065
  122. LEFLUNOMIDE. [Suspect]
     Active Substance: LEFLUNOMIDE
     Route: 048
  123. METHOTREXATE. [Suspect]
     Active Substance: METHOTREXATE
     Route: 058
  124. METHOTREXATE. [Suspect]
     Active Substance: METHOTREXATE
     Route: 058
  125. METHOTREXATE. [Suspect]
     Active Substance: METHOTREXATE
     Route: 048
  126. METHOTREXATE. [Suspect]
     Active Substance: METHOTREXATE
     Route: 058
  127. METHOTREXATE. [Suspect]
     Active Substance: METHOTREXATE
     Route: 048
  128. ETANERCEPT [Suspect]
     Active Substance: ETANERCEPT
     Indication: RHEUMATOID ARTHRITIS
     Route: 058
  129. ETANERCEPT [Suspect]
     Active Substance: ETANERCEPT
     Route: 065
  130. RITUXIMAB. [Suspect]
     Active Substance: RITUXIMAB
     Indication: PSORIATIC ARTHROPATHY
     Route: 065
  131. HYDROXYCHLOROQUINE [Suspect]
     Active Substance: HYDROXYCHLOROQUINE
     Indication: RHEUMATOID ARTHRITIS
     Route: 048
  132. HYDROXYCHLOROQUINE [Suspect]
     Active Substance: HYDROXYCHLOROQUINE
     Route: 048
  133. HYDROXYCHLOROQUINE [Suspect]
     Active Substance: HYDROXYCHLOROQUINE
     Route: 065
  134. OXYNEO [Concomitant]
     Active Substance: OXYCODONE
  135. ULORIC [Concomitant]
     Active Substance: FEBUXOSTAT
  136. NAPROXEN. [Concomitant]
     Active Substance: NAPROXEN
  137. XELJANZ [Concomitant]
     Active Substance: TOFACITINIB CITRATE
  138. NITRAZEPAM [Concomitant]
     Active Substance: NITRAZEPAM
     Route: 048
  139. STELARA [Suspect]
     Active Substance: USTEKINUMAB
     Indication: PSORIATIC ARTHROPATHY
     Route: 058
  140. MOTRIN [Suspect]
     Active Substance: IBUPROFEN
     Indication: PRODUCT USED FOR UNKNOWN INDICATION
     Route: 048
  141. CYCLOSPORINE. [Suspect]
     Active Substance: CYCLOSPORINE
     Route: 065
  142. TOCILIZUMAB. [Suspect]
     Active Substance: TOCILIZUMAB
     Route: 065
  143. HUMIRA [Suspect]
     Active Substance: ADALIMUMAB
     Route: 058
  144. ARAVA [Suspect]
     Active Substance: LEFLUNOMIDE
     Route: 065
  145. ARAVA [Suspect]
     Active Substance: LEFLUNOMIDE
     Route: 048
  146. RITUXIMAB. [Suspect]
     Active Substance: RITUXIMAB
     Route: 065
  147. RITUXIMAB. [Suspect]
     Active Substance: RITUXIMAB
     Route: 065
  148. ENBREL [Suspect]
     Active Substance: ETANERCEPT
     Indication: PSORIATIC ARTHROPATHY
     Route: 065
  149. ENBREL [Suspect]
     Active Substance: ETANERCEPT
     Route: 065
  150. LEFLUNOMIDE. [Suspect]
     Active Substance: LEFLUNOMIDE
     Route: 065
  151. METHOTREXATE. [Suspect]
     Active Substance: METHOTREXATE
     Route: 048
  152. METHOTREXATE. [Suspect]
     Active Substance: METHOTREXATE
     Route: 065
  153. METHOTREXATE. [Suspect]
     Active Substance: METHOTREXATE
     Route: 065
  154. METHOTREXATE. [Suspect]
     Active Substance: METHOTREXATE
     Route: 058
  155. METHOTREXATE. [Suspect]
     Active Substance: METHOTREXATE
     Route: 058
  156. ETANERCEPT [Suspect]
     Active Substance: ETANERCEPT
     Route: 065
  157. CIMZIA [Suspect]
     Active Substance: CERTOLIZUMAB PEGOL
     Route: 058
  158. CIMZIA [Suspect]
     Active Substance: CERTOLIZUMAB PEGOL
     Route: 058
  159. SULFASALAZINE. [Suspect]
     Active Substance: SULFASALAZINE
     Indication: PSORIATIC ARTHROPATHY
     Route: 065
  160. HYDROXYCHLOROQUINE [Suspect]
     Active Substance: HYDROXYCHLOROQUINE
     Route: 048
  161. APO?LEFLUNOMIDE [Suspect]
     Active Substance: LEFLUNOMIDE
     Route: 048
  162. ALENDRONIC ACID [Suspect]
     Active Substance: ALENDRONIC ACID
     Route: 065
  163. ALENDRONIC ACID [Suspect]
     Active Substance: ALENDRONIC ACID
     Route: 065
  164. ALENDRONIC ACID [Suspect]
     Active Substance: ALENDRONIC ACID
     Route: 065
  165. PREDNISONE. [Concomitant]
     Active Substance: PREDNISONE
  166. MOGADON [Concomitant]
     Active Substance: NITRAZEPAM
  167. CYCLOSPORINE. [Suspect]
     Active Substance: CYCLOSPORINE
     Route: 065
  168. CELEBREX [Suspect]
     Active Substance: CELECOXIB
     Route: 065
  169. TOCILIZUMAB. [Suspect]
     Active Substance: TOCILIZUMAB
     Route: 065
  170. TOCILIZUMAB. [Suspect]
     Active Substance: TOCILIZUMAB
     Route: 065
  171. TOCILIZUMAB. [Suspect]
     Active Substance: TOCILIZUMAB
     Route: 065
  172. TOCILIZUMAB. [Suspect]
     Active Substance: TOCILIZUMAB
     Route: 065
  173. TOCILIZUMAB. [Suspect]
     Active Substance: TOCILIZUMAB
     Route: 065
  174. TOCILIZUMAB. [Suspect]
     Active Substance: TOCILIZUMAB
     Route: 065
  175. HUMIRA [Suspect]
     Active Substance: ADALIMUMAB
     Route: 058
  176. ARAVA [Suspect]
     Active Substance: LEFLUNOMIDE
     Route: 065
  177. RITUXIMAB. [Suspect]
     Active Substance: RITUXIMAB
     Route: 042
  178. RITUXIMAB. [Suspect]
     Active Substance: RITUXIMAB
     Route: 042
  179. OTEZLA [Suspect]
     Active Substance: APREMILAST
     Indication: RHEUMATOID ARTHRITIS
     Route: 065
  180. METHOTREXATE. [Suspect]
     Active Substance: METHOTREXATE
     Route: 058
  181. METHOTREXATE. [Suspect]
     Active Substance: METHOTREXATE
     Route: 065
  182. METHOTREXATE. [Suspect]
     Active Substance: METHOTREXATE
     Route: 058
  183. ETANERCEPT [Suspect]
     Active Substance: ETANERCEPT
     Indication: PSORIASIS
     Route: 058
  184. ETANERCEPT [Suspect]
     Active Substance: ETANERCEPT
     Route: 065
  185. HYDROXYCHLOROQUINE [Suspect]
     Active Substance: HYDROXYCHLOROQUINE
     Route: 065
  186. HYDROXYCHLOROQUINE [Suspect]
     Active Substance: HYDROXYCHLOROQUINE
     Route: 065
  187. HYDROXYCHLOROQUINE [Suspect]
     Active Substance: HYDROXYCHLOROQUINE
     Route: 065
  188. GOLD SODIUM THIOMALATE [Suspect]
     Active Substance: GOLD SODIUM THIOMALATE
     Indication: PRODUCT USED FOR UNKNOWN INDICATION
     Route: 030
  189. ALENDRONIC ACID [Suspect]
     Active Substance: ALENDRONIC ACID
     Indication: PRODUCT USED FOR UNKNOWN INDICATION
     Route: 065
  190. METHOTREXATE SODIUM. [Concomitant]
     Active Substance: METHOTREXATE SODIUM
  191. COLCHICINE. [Concomitant]
     Active Substance: COLCHICINE
  192. ULORIC [Concomitant]
     Active Substance: FEBUXOSTAT
     Route: 048
  193. MOTRIN [Suspect]
     Active Substance: IBUPROFEN
     Route: 048
  194. FOSAMAX [Suspect]
     Active Substance: ALENDRONATE SODIUM
     Route: 065
  195. CELEBREX [Suspect]
     Active Substance: CELECOXIB
     Route: 048
  196. APO IBUPROFEN [Suspect]
     Active Substance: IBUPROFEN
     Route: 048
  197. TOCILIZUMAB. [Suspect]
     Active Substance: TOCILIZUMAB
     Route: 065
  198. ARAVA [Suspect]
     Active Substance: LEFLUNOMIDE
     Route: 048
  199. ENBREL [Suspect]
     Active Substance: ETANERCEPT
     Route: 057
  200. OTEZLA [Suspect]
     Active Substance: APREMILAST
     Route: 065
  201. METHOTREXATE. [Suspect]
     Active Substance: METHOTREXATE
     Route: 048
  202. METHOTREXATE. [Suspect]
     Active Substance: METHOTREXATE
     Route: 058
  203. METHOTREXATE. [Suspect]
     Active Substance: METHOTREXATE
     Route: 058
  204. CIMZIA [Suspect]
     Active Substance: CERTOLIZUMAB PEGOL
     Route: 058
  205. SULFASALAZINE. [Suspect]
     Active Substance: SULFASALAZINE
     Indication: RHEUMATOID ARTHRITIS
     Route: 065
  206. HYDROXYCHLOROQUINE [Suspect]
     Active Substance: HYDROXYCHLOROQUINE
     Route: 048
  207. APO?LEFLUNOMIDE [Suspect]
     Active Substance: LEFLUNOMIDE
     Indication: PRODUCT USED FOR UNKNOWN INDICATION
     Route: 048
  208. APO?LEFLUNOMIDE [Suspect]
     Active Substance: LEFLUNOMIDE
     Route: 048
  209. APO?HYDROXYQUINE [Suspect]
     Active Substance: HYDROXYCHLOROQUINE SULFATE
     Indication: RHEUMATOID ARTHRITIS
     Route: 065
  210. OXYCODONE [Concomitant]
     Active Substance: OXYCODONE
  211. CELEBREX [Suspect]
     Active Substance: CELECOXIB
     Indication: RHEUMATOID ARTHRITIS
     Route: 048
  212. COSENTYX [Suspect]
     Active Substance: SECUKINUMAB
     Indication: PSORIATIC ARTHROPATHY
     Route: 058
  213. TOCILIZUMAB. [Suspect]
     Active Substance: TOCILIZUMAB
     Route: 065
  214. ORENCIA [Suspect]
     Active Substance: ABATACEPT
     Indication: PSORIATIC ARTHROPATHY
     Route: 058
  215. RITUXIMAB. [Suspect]
     Active Substance: RITUXIMAB
     Indication: RHEUMATOID ARTHRITIS
     Route: 042
  216. RITUXIMAB. [Suspect]
     Active Substance: RITUXIMAB
     Route: 065
  217. RITUXIMAB. [Suspect]
     Active Substance: RITUXIMAB
     Route: 065
  218. ENBREL [Suspect]
     Active Substance: ETANERCEPT
     Route: 065
  219. ENBREL [Suspect]
     Active Substance: ETANERCEPT
     Route: 065
  220. ENBREL [Suspect]
     Active Substance: ETANERCEPT
     Route: 058
  221. OTEZLA [Suspect]
     Active Substance: APREMILAST
     Indication: PSORIASIS
     Route: 048
  222. OTEZLA [Suspect]
     Active Substance: APREMILAST
     Indication: PSORIATIC ARTHROPATHY
     Route: 048
  223. OTEZLA [Suspect]
     Active Substance: APREMILAST
     Route: 065
  224. METHOTREXATE. [Suspect]
     Active Substance: METHOTREXATE
     Route: 065
  225. METHOTREXATE. [Suspect]
     Active Substance: METHOTREXATE
     Route: 058
  226. ABATACEPT [Suspect]
     Active Substance: ABATACEPT
     Indication: RHEUMATOID ARTHRITIS
  227. ETANERCEPT [Suspect]
     Active Substance: ETANERCEPT
     Route: 058
  228. ETANERCEPT [Suspect]
     Active Substance: ETANERCEPT
     Route: 065
  229. HYDROXYCHLOROQUINE [Suspect]
     Active Substance: HYDROXYCHLOROQUINE
     Route: 048
  230. APO?LEFLUNOMIDE [Suspect]
     Active Substance: LEFLUNOMIDE
     Route: 065
  231. GOLD [Suspect]
     Active Substance: GOLD
     Indication: PRODUCT USED FOR UNKNOWN INDICATION
     Route: 065
  232. OXYNEO [Concomitant]
     Active Substance: OXYCODONE
     Route: 065
  233. ULORIC [Concomitant]
     Active Substance: FEBUXOSTAT
     Route: 048
  234. ACTONEL [Concomitant]
     Active Substance: RISEDRONATE SODIUM
  235. OXYCODONE HYDROCHLORIDE. [Concomitant]
     Active Substance: OXYCODONE HYDROCHLORIDE

REACTIONS (78)
  - Insomnia [Not Recovered/Not Resolved]
  - Drug eruption [Not Recovered/Not Resolved]
  - Fear of injection [Not Recovered/Not Resolved]
  - Blood parathyroid hormone decreased [Not Recovered/Not Resolved]
  - Synovitis [Not Recovered/Not Resolved]
  - Gastric disorder [Unknown]
  - Musculoskeletal disorder [Unknown]
  - Urticaria [Not Recovered/Not Resolved]
  - Rash [Not Recovered/Not Resolved]
  - Aspartate aminotransferase increased [Not Recovered/Not Resolved]
  - Treatment failure [Not Recovered/Not Resolved]
  - C-reactive protein abnormal [Not Recovered/Not Resolved]
  - Drug intolerance [Not Recovered/Not Resolved]
  - Basal cell carcinoma [Not Recovered/Not Resolved]
  - Red blood cell sedimentation rate [Not Recovered/Not Resolved]
  - Joint injury [Not Recovered/Not Resolved]
  - Ulcer [Not Recovered/Not Resolved]
  - Skin ulcer [Not Recovered/Not Resolved]
  - Condition aggravated [Unknown]
  - Contraindicated product administered [Unknown]
  - Infusion related reaction [Not Recovered/Not Resolved]
  - Tenosynovitis [Not Recovered/Not Resolved]
  - Fatigue [Not Recovered/Not Resolved]
  - Musculoskeletal stiffness [Not Recovered/Not Resolved]
  - Off label use [Unknown]
  - Tendonitis [Not Recovered/Not Resolved]
  - Malaise [Unknown]
  - Drug tolerance decreased [Unknown]
  - Alopecia [Unknown]
  - Therapeutic response decreased [Unknown]
  - Diarrhoea [Not Recovered/Not Resolved]
  - Enthesopathy [Not Recovered/Not Resolved]
  - Peripheral swelling [Not Recovered/Not Resolved]
  - Blood pressure systolic increased [Not Recovered/Not Resolved]
  - Erythema [Not Recovered/Not Resolved]
  - Arthritis [Not Recovered/Not Resolved]
  - C-reactive protein increased [Unknown]
  - Granuloma [Unknown]
  - Rash pruritic [Not Recovered/Not Resolved]
  - Drug hypersensitivity [Not Recovered/Not Resolved]
  - Drug tolerance [Unknown]
  - Headache [Not Recovered/Not Resolved]
  - Nausea [Not Recovered/Not Resolved]
  - Inflammation [Not Recovered/Not Resolved]
  - Abdominal discomfort [Not Recovered/Not Resolved]
  - Tongue disorder [Not Recovered/Not Resolved]
  - Hypercalcaemia [Not Recovered/Not Resolved]
  - Rheumatoid nodule [Not Recovered/Not Resolved]
  - Adverse event [Unknown]
  - Alanine aminotransferase abnormal [Not Recovered/Not Resolved]
  - Psoriatic arthropathy [Not Recovered/Not Resolved]
  - Therapy non-responder [Not Recovered/Not Resolved]
  - Drug ineffective [Unknown]
  - Blood creatinine increased [Not Recovered/Not Resolved]
  - Joint swelling [Not Recovered/Not Resolved]
  - Product use issue [Unknown]
  - Pain [Not Recovered/Not Resolved]
  - Granuloma skin [Not Recovered/Not Resolved]
  - Panniculitis [Not Recovered/Not Resolved]
  - Arthropathy [Not Recovered/Not Resolved]
  - Pulmonary fibrosis [Unknown]
  - Overdose [Unknown]
  - Hypersensitivity [Unknown]
  - Hypertension [Unknown]
  - Therapeutic product effect decreased [Unknown]
  - General physical health deterioration [Not Recovered/Not Resolved]
  - Loss of personal independence in daily activities [Unknown]
  - Decreased appetite [Not Recovered/Not Resolved]
  - Mobility decreased [Unknown]
  - Rheumatoid lung [Unknown]
  - Alanine aminotransferase increased [Not Recovered/Not Resolved]
  - Osteomyelitis [Unknown]
  - Therapeutic product effect incomplete [Unknown]
  - Arthralgia [Not Recovered/Not Resolved]
  - Red blood cell sedimentation rate increased [Not Recovered/Not Resolved]
  - Arthralgia [Unknown]
  - Skin necrosis [Not Recovered/Not Resolved]
  - Rheumatoid arthritis [Not Recovered/Not Resolved]
